FAERS Safety Report 4881833-4 (Version None)
Quarter: 2006Q1

REPORT INFORMATION
  Report Type: 
  Country: None (occurrence: None)
  Receive Date: 20060112
  Receipt Date: 20060112
  Transmission Date: 20060701
  Serious: No
  Sender: FDA-Public Use
  Company Number: None

PATIENT
  Age: 38 Year
  Sex: Male
  Weight: 75.2971 kg

DRUGS (12)
  1. APTIVUS [Suspect]
     Dosage: 500 MG PO BID
     Route: 048
  2. TRUVADA [Concomitant]
  3. TRICOR [Concomitant]
  4. FAZEON [Concomitant]
  5. AMBIEN [Concomitant]
  6. MARINAL [Concomitant]
  7. ACYCLOVIR [Concomitant]
  8. NEXIUM [Concomitant]
  9. PROCRIT [Concomitant]
  10. ASPROGEL [Concomitant]
  11. NIASPAN [Concomitant]
  12. FERROUS SULFATE TAB [Concomitant]

REACTIONS (5)
  - BLOOD PRESSURE SYSTOLIC INCREASED [None]
  - ERYTHEMA [None]
  - HEART RATE INCREASED [None]
  - PYREXIA [None]
  - RASH MACULAR [None]
